FAERS Safety Report 13777231 (Version 3)
Quarter: 2018Q1

REPORT INFORMATION
  Report Type: Spontaneous
  Country: US (occurrence: US)
  Receive Date: 20170721
  Receipt Date: 20180110
  Transmission Date: 20180508
  Serious: No
  Sender: FDA-Public Use
  Company Number: US-PFIZER INC-2017318422

PATIENT
  Sex: Female

DRUGS (3)
  1. AROMASIN [Suspect]
     Active Substance: EXEMESTANE
     Indication: BREAST CANCER METASTATIC
     Dosage: 25 MG, UNK
     Route: 048
  2. AFINITOR [Suspect]
     Active Substance: EVEROLIMUS
     Indication: NEOPLASM MALIGNANT
     Dosage: 10 MG, 1X/DAY
  3. AROMASIN [Suspect]
     Active Substance: EXEMESTANE
     Indication: NEOPLASM MALIGNANT
     Dosage: UNK

REACTIONS (3)
  - Neoplasm progression [Recovering/Resolving]
  - Fluid retention [Unknown]
  - Oral mucosal blistering [Unknown]
